FAERS Safety Report 4920456-5 (Version None)
Quarter: 2006Q1

REPORT INFORMATION
  Report Type: 
  Country: None (occurrence: None)
  Receive Date: 20060223
  Receipt Date: 20051017
  Transmission Date: 20060701
  Serious: Yes (Hospitalization)
  Sender: FDA-Public Use
  Company Number: US-MERCK-0510USA07817

PATIENT
  Age: 61 Year
  Sex: Male
  Weight: 99 kg

DRUGS (5)
  1. VIOXX [Suspect]
     Indication: ARTHRITIS
     Route: 048
     Dates: start: 19990101, end: 20040930
  2. UNIVASC [Concomitant]
     Indication: HYPERTENSION
     Route: 048
     Dates: start: 19970101, end: 20010101
  3. GLUCOPHAGE [Concomitant]
     Route: 065
  4. AXID [Concomitant]
     Route: 065
  5. PRILOSEC [Concomitant]
     Indication: DYSPEPSIA
     Route: 065

REACTIONS (9)
  - BLOOD CHOLESTEROL INCREASED [None]
  - CARDIAC FAILURE CONGESTIVE [None]
  - CARPAL TUNNEL SYNDROME [None]
  - CORONARY ARTERY DISEASE [None]
  - DYSPEPSIA [None]
  - EAR INFECTION [None]
  - HAEMATOCRIT DECREASED [None]
  - HYPERLIPIDAEMIA [None]
  - MYOCARDIAL INFARCTION [None]
